FAERS Safety Report 21099004 (Version 1)
Quarter: 2022Q3

REPORT INFORMATION
  Report Type: Spontaneous
  Country: US (occurrence: US)
  Receive Date: 20220719
  Receipt Date: 20220719
  Transmission Date: 20221026
  Serious: Yes (Hospitalization)
  Sender: FDA-Public Use
  Company Number: US-MYLANLABS-2022M1078343

PATIENT
  Age: 30 Year
  Sex: Female

DRUGS (3)
  1. ETHINYL ESTRADIOL\NORETHINDRONE [Suspect]
     Active Substance: ETHINYL ESTRADIOL\NORETHINDRONE
     Indication: Oral contraception
     Dosage: UNK, LOW DOSE
     Route: 048
  2. LABETALOL [Concomitant]
     Active Substance: LABETALOL\LABETALOL HYDROCHLORIDE
     Indication: Hypertension
     Dosage: UNK
     Route: 065
  3. BUPROPION [Concomitant]
     Active Substance: BUPROPION
     Indication: Major depression
     Dosage: UNK
     Route: 065

REACTIONS (3)
  - Acute myocardial infarction [Recovering/Resolving]
  - Coronary artery dissection [Recovering/Resolving]
  - Coronary artery thrombosis [Recovering/Resolving]
